FAERS Safety Report 18997708 (Version 1)
Quarter: 2021Q1

REPORT INFORMATION
  Report Type: Report from Study
  Country: US (occurrence: US)
  Receive Date: 20210311
  Receipt Date: 20210311
  Transmission Date: 20210420
  Serious: Yes (Death)
  Sender: FDA-Public Use
  Company Number: US-ASTRAZENECA-2021A117793

PATIENT
  Age: 26940 Day
  Sex: Female

DRUGS (2)
  1. LYNPARZA [Suspect]
     Active Substance: OLAPARIB
     Indication: BREAST CANCER FEMALE
     Route: 048
     Dates: start: 20200113, end: 202101
  2. LYNPARZA [Suspect]
     Active Substance: OLAPARIB
     Indication: OESTROGEN RECEPTOR ASSAY POSITIVE
     Route: 048
     Dates: start: 20200113, end: 202101

REACTIONS (1)
  - Death [Fatal]

NARRATIVE: CASE EVENT DATE: 20210107
